FAERS Safety Report 8208450-2 (Version None)
Quarter: 2012Q1

REPORT INFORMATION
  Report Type: 
  Country: None (occurrence: None)
  Receive Date: 20120314
  Receipt Date: 20120311
  Transmission Date: 20120608
  Serious: Yes (Other)
  Sender: FDA-Public Use
  Company Number: US-PFIZER INC-2012064048

PATIENT
  Sex: Male

DRUGS (3)
  1. IBUPROFEN (ADVIL) [Suspect]
     Indication: MULTIPLE FRACTURES
     Dosage: 200 MG, 3X/DAY
     Route: 048
  2. IBUPROFEN (ADVIL) [Suspect]
     Dosage: 30 DF, 3X/DAY
  3. IBUPROFEN (ADVIL) [Suspect]
     Dosage: UNK
     Route: 048

REACTIONS (3)
  - OVERDOSE [None]
  - GASTRIC HAEMORRHAGE [None]
  - HAEMORRHAGE [None]
